FAERS Safety Report 9587424 (Version 4)
Quarter: 2013Q4

REPORT INFORMATION
  Report Type: Report from Study
  Country: BR (occurrence: BR)
  Receive Date: 20131003
  Receipt Date: 20131112
  Transmission Date: 20140711
  Serious: Yes (Hospitalization, Other)
  Sender: FDA-Public Use
  Company Number: PHHY2011BR099014

PATIENT
  Sex: Female
  Weight: 51 kg

DRUGS (6)
  1. FORASEQ [Suspect]
     Indication: BRONCHITIS
     Dosage: 1 DF, TID
  2. FORASEQ [Suspect]
     Dosage: 1 DF, TID
     Dates: start: 201007
  3. FORASEQ [Suspect]
     Dosage: TWICE A DAY OF EACH TREATMENT
  4. BEROTEC [Suspect]
     Indication: BRONCHITIS
     Dosage: 3 DROPS
  5. ATROVENT [Suspect]
     Indication: BRONCHITIS
     Dosage: 12 DROPS
  6. RANITIDINE [Concomitant]
     Dosage: 1 DF, QD
     Route: 048

REACTIONS (28)
  - Panic disorder [Not Recovered/Not Resolved]
  - Lip discolouration [Recovered/Resolved]
  - Bronchitis [Recovered/Resolved]
  - Dyspnoea [Recovered/Resolved]
  - Pharyngitis [Recovering/Resolving]
  - Pneumonia [Recovered/Resolved]
  - Anaphylactic shock [Recovered/Resolved]
  - Syncope [Recovered/Resolved]
  - Arrhythmia [Recovered/Resolved]
  - Aphonia [Recovered/Resolved]
  - Anaemia [Recovered/Resolved]
  - Body height decreased [Recovered/Resolved]
  - Sputum discoloured [Recovered/Resolved]
  - Device malfunction [Unknown]
  - Product physical issue [Unknown]
  - Back pain [Recovered/Resolved]
  - Chest pain [Recovered/Resolved]
  - Influenza [Recovered/Resolved]
  - Sneezing [Recovered/Resolved]
  - Nasopharyngitis [Not Recovered/Not Resolved]
  - Joint swelling [Recovered/Resolved]
  - Malaise [Unknown]
  - Muscle spasms [Recovered/Resolved]
  - Blood pressure systolic increased [Recovered/Resolved]
  - Tremor [Recovered/Resolved]
  - Nervousness [Not Recovered/Not Resolved]
  - Cough [Recovered/Resolved]
  - Hypersensitivity [Not Recovered/Not Resolved]
